FAERS Safety Report 9203684 (Version 1)
Quarter: 2013Q1

REPORT INFORMATION
  Report Type: Spontaneous
  Country: US (occurrence: None)
  Receive Date: 20130329
  Receipt Date: 20130329
  Transmission Date: 20140127
  Serious: Yes (Other)
  Sender: FDA-Public Use
  Company Number: None

PATIENT
  Age: 17 Year
  Sex: Female
  Weight: 131.09 kg

DRUGS (1)
  1. CYMBALTA 60MG [Suspect]

REACTIONS (5)
  - Aggression [None]
  - Personality change [None]
  - Mood swings [None]
  - Anger [None]
  - Feeling abnormal [None]
